FAERS Safety Report 7993483-1 (Version None)
Quarter: 2011Q4

REPORT INFORMATION
  Report Type: 
  Country: None (occurrence: None)
  Receive Date: 20111219
  Receipt Date: 20111209
  Transmission Date: 20120403
  Serious: Yes (Other)
  Sender: FDA-Public Use
  Company Number: US-ELI_LILLY_AND_COMPANY-US201112003313

PATIENT
  Age: 30 Year
  Sex: Female

DRUGS (1)
  1. STRATTERA [Suspect]
     Indication: ATTENTION DEFICIT/HYPERACTIVITY DISORDER
     Dosage: 40 MG, QD
     Dates: start: 20111206

REACTIONS (7)
  - RENAL PAIN [None]
  - BLOOD URINE PRESENT [None]
  - VOMITING [None]
  - COUGH [None]
  - DIZZINESS [None]
  - MALAISE [None]
  - SKIN DISCOLOURATION [None]
